FAERS Safety Report 5054063-3 (Version None)
Quarter: 2006Q3

REPORT INFORMATION
  Report Type: 
  Country: None (occurrence: None)
  Receive Date: 20060713
  Receipt Date: 20060630
  Transmission Date: 20061208
  Serious: No
  Sender: FDA-Public Use
  Company Number: 2006-141427-NL

PATIENT
  Age: 38 Year
  Sex: Female

DRUGS (1)
  1. MARVELON [Suspect]
     Indication: CONTRACEPTION
     Dosage: DF ORAL
     Route: 048
     Dates: start: 20051201, end: 20060301

REACTIONS (2)
  - HEPATIC STEATOSIS [None]
  - PALPITATIONS [None]
